FAERS Safety Report 7715830-8 (Version None)
Quarter: 2011Q3

REPORT INFORMATION
  Report Type: 
  Country: None (occurrence: None)
  Receive Date: 20110829
  Receipt Date: 20110829
  Transmission Date: 20111222
  Serious: No
  Sender: FDA-Public Use
  Company Number: None

PATIENT
  Age: 35 Day
  Sex: Female
  Weight: 3 kg

DRUGS (1)
  1. FUROSEMIDE [Suspect]
     Dosage: 3MG -0.3ML-
     Route: 040
     Dates: start: 20110727, end: 20110804

REACTIONS (2)
  - DRUG INTERACTION [None]
  - WRONG TECHNIQUE IN DRUG USAGE PROCESS [None]
